FAERS Safety Report 4336309-X (Version None)
Quarter: 2004Q2

REPORT INFORMATION
  Report Type: 
  Country: None (occurrence: None)
  Receive Date: 20040407
  Receipt Date: 20040324
  Transmission Date: 20050107
  Serious: Yes (Other)
  Sender: FDA-Public Use
  Company Number: A03200400119

PATIENT
  Age: 76 Year
  Sex: Female
  Weight: 95.2554 kg

DRUGS (5)
  1. ELOXATIN [Suspect]
     Indication: COLORECTAL CANCER STAGE III
     Dosage: 170 MG Q2W - INTRAVENOUS NOS
     Route: 042
     Dates: start: 20031208, end: 20031208
  2. DEXAMETHASONE [Concomitant]
  3. ONDANSETRON HCL [Concomitant]
  4. FLUOROURACIL [Concomitant]
  5. LEUCOVORIN CALCIUM [Concomitant]

REACTIONS (6)
  - BLINDNESS TRANSIENT [None]
  - CAROTID ARTERY ATHEROMA [None]
  - CONFUSIONAL STATE [None]
  - DISORIENTATION [None]
  - EYE IRRITATION [None]
  - MEMORY IMPAIRMENT [None]
